FAERS Safety Report 24361838 (Version 3)
Quarter: 2024Q4

REPORT INFORMATION
  Report Type: Spontaneous
  Country: CN (occurrence: CN)
  Receive Date: 20240925
  Receipt Date: 20241009
  Transmission Date: 20250114
  Serious: Yes (Hospitalization, Other)
  Sender: PFIZER
  Company Number: CN-PFIZER INC-PV202400124012

PATIENT
  Age: 29 Year
  Sex: Male

DRUGS (49)
  1. BENEFIX [Suspect]
     Active Substance: COAGULATION FACTOR IX RECOMBINANT HUMAN\ISOPROPYL ALCOHOL
     Indication: Factor IX deficiency
     Dosage: 2000 IU, IMMEDIATELY (ST)
     Route: 040
     Dates: start: 20230708, end: 20230711
  2. BENEFIX [Suspect]
     Active Substance: COAGULATION FACTOR IX RECOMBINANT HUMAN\ISOPROPYL ALCOHOL
     Dosage: 8000 IU (2000IU, IMMEDIATELY + 6000IU, IMMEDIATELY)
     Route: 040
     Dates: start: 20230712
  3. BENEFIX [Suspect]
     Active Substance: COAGULATION FACTOR IX RECOMBINANT HUMAN\ISOPROPYL ALCOHOL
     Dosage: 6000 IU, IMMEDIATELY
     Route: 040
     Dates: start: 20230713, end: 20230714
  4. BENEFIX [Suspect]
     Active Substance: COAGULATION FACTOR IX RECOMBINANT HUMAN\ISOPROPYL ALCOHOL
     Dosage: 8000 IU (6000IU, IMMEDIATELY + 2000IU, IMMEDIATELY)
     Route: 040
     Dates: start: 20230715, end: 20230717
  5. BENEFIX [Suspect]
     Active Substance: COAGULATION FACTOR IX RECOMBINANT HUMAN\ISOPROPYL ALCOHOL
     Dosage: 2000 IU, IMMEDIATELY
     Route: 040
     Dates: start: 20230718
  6. BENEFIX [Suspect]
     Active Substance: COAGULATION FACTOR IX RECOMBINANT HUMAN\ISOPROPYL ALCOHOL
     Dosage: 7500 IU (6000IU, IMMEDIATELY + 1500IU, IMMEDIATELY)
     Route: 040
     Dates: start: 20230719
  7. BENEFIX [Suspect]
     Active Substance: COAGULATION FACTOR IX RECOMBINANT HUMAN\ISOPROPYL ALCOHOL
     Dosage: 11000 IU (5000IU, IMMEDIATELY + 1000IU, IMMEDIATELY + 5000IU, IMMEDIATELY)
     Route: 040
     Dates: start: 20230720
  8. BENEFIX [Suspect]
     Active Substance: COAGULATION FACTOR IX RECOMBINANT HUMAN\ISOPROPYL ALCOHOL
     Dosage: 6000 IU (5000IU, IMMEDIATELY + 1000IU, IMMEDIATELY)
     Route: 040
     Dates: start: 20230721
  9. BENEFIX [Suspect]
     Active Substance: COAGULATION FACTOR IX RECOMBINANT HUMAN\ISOPROPYL ALCOHOL
     Dosage: 1000 IU, IMMEDIATELY
     Route: 040
     Dates: start: 20230722
  10. BENEFIX [Suspect]
     Active Substance: COAGULATION FACTOR IX RECOMBINANT HUMAN\ISOPROPYL ALCOHOL
     Dosage: 3000 IU (2000IU, IMMEDIATELY + 1000IU, IMMEDIATELY)
     Route: 040
     Dates: start: 20230723, end: 20230724
  11. BENEFIX [Suspect]
     Active Substance: COAGULATION FACTOR IX RECOMBINANT HUMAN\ISOPROPYL ALCOHOL
     Dosage: 1000 IU, IMMEDIATELY
     Route: 040
     Dates: start: 20230725
  12. BENEFIX [Suspect]
     Active Substance: COAGULATION FACTOR IX RECOMBINANT HUMAN\ISOPROPYL ALCOHOL
     Dosage: 5000 IU (1000IU, IMMEDIATELY + 2000IU, IMMEDIATELY + 2000IU, IMMEDIATELY)
     Route: 040
     Dates: start: 20230726
  13. BENEFIX [Suspect]
     Active Substance: COAGULATION FACTOR IX RECOMBINANT HUMAN\ISOPROPYL ALCOHOL
     Dosage: 2500 IU (500IU, IMMEDIATELY + 2000IU, IMMEDIATELY)
     Route: 040
     Dates: start: 20230727, end: 20230830
  14. BENEFIX [Suspect]
     Active Substance: COAGULATION FACTOR IX RECOMBINANT HUMAN\ISOPROPYL ALCOHOL
     Dosage: 2000 IU, IMMEDIATELY
     Route: 042
     Dates: start: 20231011
  15. BENEFIX [Suspect]
     Active Substance: COAGULATION FACTOR IX RECOMBINANT HUMAN\ISOPROPYL ALCOHOL
     Dosage: 2000 IU, QD
     Route: 042
     Dates: start: 20231011
  16. BENEFIX [Suspect]
     Active Substance: COAGULATION FACTOR IX RECOMBINANT HUMAN\ISOPROPYL ALCOHOL
     Dosage: 1000 IU, Q12H
     Route: 042
     Dates: start: 20231012
  17. BENEFIX [Suspect]
     Active Substance: COAGULATION FACTOR IX RECOMBINANT HUMAN\ISOPROPYL ALCOHOL
     Dosage: 2000 IU, IMMEDIATELY
     Route: 040
     Dates: start: 20231115
  18. BENEFIX [Suspect]
     Active Substance: COAGULATION FACTOR IX RECOMBINANT HUMAN\ISOPROPYL ALCOHOL
     Dosage: 3500 IU (1000IU, IMMEDIATELY + 500IU, IMMEDIATELY + 2000IU, IMMEDIATELY)
     Route: 040
     Dates: start: 20231117
  19. BENEFIX [Suspect]
     Active Substance: COAGULATION FACTOR IX RECOMBINANT HUMAN\ISOPROPYL ALCOHOL
     Dosage: 2500 IU (500IU, IMMEDIATELY + 2000IU, IMMEDIATELY)
     Route: 040
     Dates: start: 20231118
  20. BENEFIX [Suspect]
     Active Substance: COAGULATION FACTOR IX RECOMBINANT HUMAN\ISOPROPYL ALCOHOL
     Dosage: 4000 IU (2000IU, IMMEDIATELY + 2000IU, IMMEDIATELY)
     Route: 040
     Dates: start: 20231119
  21. BENEFIX [Suspect]
     Active Substance: COAGULATION FACTOR IX RECOMBINANT HUMAN\ISOPROPYL ALCOHOL
     Dosage: 2000 IU, IMMEDIATELY
     Route: 040
     Dates: start: 20231121, end: 20231124
  22. BENEFIX [Suspect]
     Active Substance: COAGULATION FACTOR IX RECOMBINANT HUMAN\ISOPROPYL ALCOHOL
     Dosage: 9500IU (5000IU, IMMEDIATELY + 4500IU, IMMEDIATELY)
     Route: 040
     Dates: start: 20231125
  23. BENEFIX [Suspect]
     Active Substance: COAGULATION FACTOR IX RECOMBINANT HUMAN\ISOPROPYL ALCOHOL
     Dosage: 6000IU (2000IU, IMMEDIATELY + 4000IU, IMMEDIATELY)
     Route: 040
     Dates: start: 20231126, end: 20231128
  24. BENEFIX [Suspect]
     Active Substance: COAGULATION FACTOR IX RECOMBINANT HUMAN\ISOPROPYL ALCOHOL
     Dosage: 4500IU (1000IU, IMMEDIATELY + 3500IU, IMMEDIATELY)
     Route: 040
     Dates: start: 20231129, end: 20231201
  25. BENEFIX [Suspect]
     Active Substance: COAGULATION FACTOR IX RECOMBINANT HUMAN\ISOPROPYL ALCOHOL
     Dosage: 4000IU (3000IU, IMMEDIATELY + 1000IU, IMMEDIATELY)
     Route: 040
     Dates: start: 20231202
  26. BENEFIX [Suspect]
     Active Substance: COAGULATION FACTOR IX RECOMBINANT HUMAN\ISOPROPYL ALCOHOL
     Dosage: 5000IU (1000IU, IMMEDIATELY + 1000IU, IMMEDIATELY + 3000IU, IMMEDIATELY)
     Route: 040
     Dates: start: 20231203
  27. BENEFIX [Suspect]
     Active Substance: COAGULATION FACTOR IX RECOMBINANT HUMAN\ISOPROPYL ALCOHOL
     Dosage: 4000IU (1000IU, IMMEDIATELY + 3000IU, IMMEDIATELY)
     Route: 040
     Dates: start: 20231204, end: 20231211
  28. BENEFIX [Suspect]
     Active Substance: COAGULATION FACTOR IX RECOMBINANT HUMAN\ISOPROPYL ALCOHOL
     Dosage: 1000IU, ST+3000IU, ST+1000IU, ST+1000IU, ST+2000IU, ST
     Route: 040
     Dates: start: 20231212
  29. BENEFIX [Suspect]
     Active Substance: COAGULATION FACTOR IX RECOMBINANT HUMAN\ISOPROPYL ALCOHOL
     Dosage: 4000IU (3000IU, IMMEDIATELY + 1000IU, IMMEDIATELY)
     Route: 040
     Dates: start: 20231213, end: 20231214
  30. BENEFIX [Suspect]
     Active Substance: COAGULATION FACTOR IX RECOMBINANT HUMAN\ISOPROPYL ALCOHOL
     Dosage: 5000IU (3000IU, IMMEDIATELY + 1000IU, IMMEDIATELY + 1000IU, IMMEDIATELY)
     Route: 040
     Dates: start: 20231215
  31. BENEFIX [Suspect]
     Active Substance: COAGULATION FACTOR IX RECOMBINANT HUMAN\ISOPROPYL ALCOHOL
     Dosage: 6500IU (1500IU, IMMEDIATELY + 4000IU, IMMEDIATELY + 1000IU, IMMEDIATELY)
     Route: 040
     Dates: start: 20231216
  32. BENEFIX [Suspect]
     Active Substance: COAGULATION FACTOR IX RECOMBINANT HUMAN\ISOPROPYL ALCOHOL
     Dosage: 5500IU (1500IU, IMMEDIATELY + 4000IU, IMMEDIATELY)
     Route: 040
     Dates: start: 20231217, end: 20231219
  33. BENEFIX [Suspect]
     Active Substance: COAGULATION FACTOR IX RECOMBINANT HUMAN\ISOPROPYL ALCOHOL
     Dosage: 7000IU (1500IU, IMMEDIATELY + 4000IU, IMMEDIATELY + 1500IU, IMMEDIATELY)
     Route: 040
     Dates: start: 20231220
  34. BENEFIX [Suspect]
     Active Substance: COAGULATION FACTOR IX RECOMBINANT HUMAN\ISOPROPYL ALCOHOL
     Dosage: 5500IU (1500IU, IMMEDIATELY + 4000IU, IMMEDIATELY)
     Route: 040
     Dates: start: 20231221, end: 20231222
  35. BENEFIX [Suspect]
     Active Substance: COAGULATION FACTOR IX RECOMBINANT HUMAN\ISOPROPYL ALCOHOL
     Dosage: 7000IU (4000IU, IMMEDIATELY + 1500IU, IMMEDIATELY + 1500IU, IMMEDIATELY)
     Route: 040
     Dates: start: 20231223
  36. BENEFIX [Suspect]
     Active Substance: COAGULATION FACTOR IX RECOMBINANT HUMAN\ISOPROPYL ALCOHOL
     Dosage: 5500IU (1500IU, IMMEDIATELY + 4000IU, IMMEDIATELY)
     Route: 040
     Dates: start: 20231224
  37. BENEFIX [Suspect]
     Active Substance: COAGULATION FACTOR IX RECOMBINANT HUMAN\ISOPROPYL ALCOHOL
     Dosage: 5000IU (3500IU, IMMEDIATELY + 1500IU, IMMEDIATELY)
     Route: 040
     Dates: start: 20231225, end: 20231228
  38. BENEFIX [Suspect]
     Active Substance: COAGULATION FACTOR IX RECOMBINANT HUMAN\ISOPROPYL ALCOHOL
     Dosage: 4500IU (1500IU, IMMEDIATELY + 3000IU, IMMEDIATELY)
     Route: 040
     Dates: start: 20231229, end: 20240101
  39. BENEFIX [Suspect]
     Active Substance: COAGULATION FACTOR IX RECOMBINANT HUMAN\ISOPROPYL ALCOHOL
     Dosage: 5000IU (1500IU, IMMEDIATELY + 500IU, IMMEDIATELY + 3000IU, IMMEDIATELY)
     Route: 040
     Dates: start: 20240102
  40. BENEFIX [Suspect]
     Active Substance: COAGULATION FACTOR IX RECOMBINANT HUMAN\ISOPROPYL ALCOHOL
     Dosage: 4500IU (3500IU, IMMEDIATELY + 1000IU, IMMEDIATELY)
     Route: 040
     Dates: start: 20240103, end: 20240116
  41. BENEFIX [Suspect]
     Active Substance: COAGULATION FACTOR IX RECOMBINANT HUMAN\ISOPROPYL ALCOHOL
     Dosage: 5500IU (3500IU, IMMEDIATELY + 1000IU, IMMEDIATELY + 1000IU, IMMEDIATELY)
     Route: 040
     Dates: start: 20240117
  42. BENEFIX [Suspect]
     Active Substance: COAGULATION FACTOR IX RECOMBINANT HUMAN\ISOPROPYL ALCOHOL
     Dosage: 4500IU (1000IU, IMMEDIATELY + 3500IU, IMMEDIATELY)
     Route: 040
     Dates: start: 20240118
  43. BENEFIX [Suspect]
     Active Substance: COAGULATION FACTOR IX RECOMBINANT HUMAN\ISOPROPYL ALCOHOL
     Dosage: 1000 IU, ONCE
     Route: 042
     Dates: start: 20240416
  44. BENEFIX [Suspect]
     Active Substance: COAGULATION FACTOR IX RECOMBINANT HUMAN\ISOPROPYL ALCOHOL
     Dosage: 1000 IU, Q12H
     Route: 042
     Dates: start: 20240416
  45. BENEFIX [Suspect]
     Active Substance: COAGULATION FACTOR IX RECOMBINANT HUMAN\ISOPROPYL ALCOHOL
     Dosage: 1000 IU, Q12H
     Route: 042
     Dates: start: 20240426
  46. BENEFIX [Suspect]
     Active Substance: COAGULATION FACTOR IX RECOMBINANT HUMAN\ISOPROPYL ALCOHOL
     Dosage: 1000 IU, ONCE
     Route: 042
     Dates: start: 20240426
  47. BENEFIX [Suspect]
     Active Substance: COAGULATION FACTOR IX RECOMBINANT HUMAN\ISOPROPYL ALCOHOL
     Dosage: 2000 IU, QD
     Route: 042
     Dates: start: 20240701
  48. BENEFIX [Suspect]
     Active Substance: COAGULATION FACTOR IX RECOMBINANT HUMAN\ISOPROPYL ALCOHOL
     Dosage: 2000 IU, QD
     Route: 040
     Dates: start: 20240723
  49. BENEFIX [Suspect]
     Active Substance: COAGULATION FACTOR IX RECOMBINANT HUMAN\ISOPROPYL ALCOHOL
     Dosage: 2000 IU, QD
     Route: 042
     Dates: start: 20240812

REACTIONS (8)
  - Arthralgia [Recovered/Resolved]
  - Joint swelling [Recovered/Resolved]
  - Ecchymosis [Recovered/Resolved]
  - Haemarthrosis [Recovered/Resolved]
  - Joint arthroplasty [Recovered/Resolved]
  - Post procedural haemorrhage [Recovered/Resolved]
  - Therapeutic product effect decreased [Recovered/Resolved]
  - Joint range of motion decreased [Recovered/Resolved]

NARRATIVE: CASE EVENT DATE: 20230701
